FAERS Safety Report 8309169-X (Version None)
Quarter: 2012Q2

REPORT INFORMATION
  Report Type: 
  Country: None (occurrence: None)
  Receive Date: 20120424
  Receipt Date: 20120413
  Transmission Date: 20120825
  Serious: Yes (Death)
  Sender: FDA-Public Use
  Company Number: PT-BAXTER-2012BH002600

PATIENT
  Sex: Male

DRUGS (3)
  1. PHYSIONEAL_1.36% PHYSIONEAL 35_SOLUTION FOR PERITONEAL DIALYSIS_BAG, P [Suspect]
     Route: 033
     Dates: end: 20120121
  2. EXTRANEAL [Suspect]
     Route: 033
     Dates: end: 20120121
  3. PHYSIONEAL_1.36% PHYSIONEAL 40_SOLUTION FOR PERITONEAL DIALYSIS_BAG, P [Suspect]
     Route: 033
     Dates: end: 20120121

REACTIONS (1)
  - CARDIAC ARREST [None]
